FAERS Safety Report 8114989-0 (Version None)
Quarter: 2012Q1

REPORT INFORMATION
  Report Type: 
  Country: None (occurrence: None)
  Receive Date: 20120206
  Receipt Date: 20120201
  Transmission Date: 20120608
  Serious: Yes (Death, Hospitalization)
  Sender: FDA-Public Use
  Company Number: PH-ASTRAZENECA-2012SE06529

PATIENT
  Age: 26412 Day
  Sex: Male

DRUGS (11)
  1. SITAGLIPTIN [Concomitant]
     Indication: TYPE 2 DIABETES MELLITUS
     Route: 048
     Dates: start: 20110809, end: 20120125
  2. VILDAGLIPTIN [Concomitant]
     Indication: TYPE 2 DIABETES MELLITUS
     Route: 048
     Dates: start: 20100106, end: 20120125
  3. ATORVASTATIN [Concomitant]
     Indication: HYPERCHOLESTEROLAEMIA
     Route: 048
     Dates: start: 20100106, end: 20120125
  4. CARVEDILOL [Concomitant]
     Indication: HYPERTENSION
     Route: 048
     Dates: start: 20100106, end: 20120125
  5. ALDAZIDE [Concomitant]
     Indication: DIURETIC THERAPY
     Route: 048
     Dates: start: 20100106, end: 20120125
  6. LOSARTAN POTASSIUM [Concomitant]
     Indication: HYPERTENSION
     Route: 048
     Dates: start: 20100106, end: 20120125
  7. GLIMEPIRIDE [Concomitant]
     Indication: TYPE 2 DIABETES MELLITUS
     Route: 048
     Dates: start: 20100106, end: 20120125
  8. TRIMETAZIDINE [Concomitant]
     Indication: HYPERTENSION
     Route: 048
     Dates: start: 20100106, end: 20120125
  9. LANOXIN [Concomitant]
     Indication: CARDIOVASCULAR EVENT PROPHYLAXIS
     Route: 048
     Dates: start: 20100106, end: 20120125
  10. PLAVIX [Suspect]
     Indication: CORONARY ARTERY DISEASE
     Route: 048
     Dates: start: 20110809, end: 20120125
  11. ASPIRIN [Suspect]
     Route: 048
     Dates: start: 20100106, end: 20120125

REACTIONS (1)
  - GASTROINTESTINAL HAEMORRHAGE [None]
